FAERS Safety Report 8046057-0 (Version None)
Quarter: 2012Q1

REPORT INFORMATION
  Report Type: 
  Country: None (occurrence: None)
  Receive Date: 20120113
  Receipt Date: 20120105
  Transmission Date: 20120608
  Serious: Yes (Other)
  Sender: FDA-Public Use
  Company Number: PHFR2011GB01124

PATIENT
  Sex: Female

DRUGS (9)
  1. MAXEPA [Concomitant]
     Dosage: 5 DF, UNK
     Route: 048
     Dates: start: 20110828
  2. OMEPRAZOLE [Concomitant]
     Dosage: 40 UKN, UNK
     Route: 048
  3. TEGRETOL [Suspect]
     Dosage: 200 MG, UNK
     Route: 048
  4. TEGRETOL [Suspect]
     Dosage: 100 MG, UNK
  5. GABAPENTIN [Concomitant]
     Route: 048
  6. AMITRIPTYLINE HCL [Concomitant]
     Dosage: 20 MG, UNK
     Route: 048
  7. METROMIN [Concomitant]
     Dosage: 1000 UKN, UNK
     Route: 048
  8. SIMVASTATIN [Concomitant]
     Dosage: 20 UKN, UNK
  9. LISINOPRIL [Concomitant]
     Dosage: 10 UKN, UNK
     Route: 048

REACTIONS (4)
  - MONOPARESIS [None]
  - FEELING ABNORMAL [None]
  - MOVEMENT DISORDER [None]
  - WRONG TECHNIQUE IN DRUG USAGE PROCESS [None]
